FAERS Safety Report 15638054 (Version 1)
Quarter: 2018Q4

REPORT INFORMATION
  Report Type: Spontaneous
  Country: US (occurrence: US)
  Receive Date: 20181120
  Receipt Date: 20181120
  Transmission Date: 20190205
  Serious: No
  Sender: FDA-Public Use
  Company Number: US-JNJFOC-20180736196

PATIENT
  Sex: Male
  Weight: 114 kg

DRUGS (11)
  1. IMBRUVICA [Concomitant]
     Active Substance: IBRUTINIB
     Indication: LYMPHOCYTIC LEUKAEMIA
     Route: 048
     Dates: start: 201803, end: 201804
  2. METOPROLOL. [Concomitant]
     Active Substance: METOPROLOL
  3. OXYBUTIN [Concomitant]
     Active Substance: OXYBUTYNIN
  4. IMBRUVICA [Suspect]
     Active Substance: IBRUTINIB
     Indication: LYMPHOCYTIC LEUKAEMIA
     Route: 048
     Dates: start: 20180406
  5. AMLODIPINE [Concomitant]
     Active Substance: AMLODIPINE BESYLATE
  6. POTASSIUM [Concomitant]
     Active Substance: POTASSIUM
  7. SYNTHROID [Concomitant]
     Active Substance: LEVOTHYROXINE SODIUM
  8. MEFENAMIC ACID. [Concomitant]
     Active Substance: MEFENAMIC ACID
  9. BUMETANIDE. [Concomitant]
     Active Substance: BUMETANIDE
  10. AVODART [Concomitant]
     Active Substance: DUTASTERIDE
  11. TYLENOL [Concomitant]
     Active Substance: ACETAMINOPHEN

REACTIONS (1)
  - Back pain [Unknown]

NARRATIVE: CASE EVENT DATE: 2018
